FAERS Safety Report 23100118 (Version 1)
Quarter: 2023Q4

REPORT INFORMATION
  Report Type: Spontaneous
  Country: US (occurrence: US)
  Receive Date: 20231024
  Receipt Date: 20231024
  Transmission Date: 20240110
  Serious: Yes (Other)
  Sender: FDA-Public Use
  Company Number: US-GLAND PHARMA LIMITED-2023US003828

PATIENT

DRUGS (1)
  1. ESMOLOL HYDROCHLORIDE [Suspect]
     Active Substance: ESMOLOL HYDROCHLORIDE
     Indication: Blood pressure management
     Route: 065

REACTIONS (3)
  - Seizure [Recovered/Resolved]
  - Haemorrhage intracranial [Recovered/Resolved]
  - Product use in unapproved indication [Unknown]
